FAERS Safety Report 10692855 (Version 1)
Quarter: 2015Q1

REPORT INFORMATION
  Report Type: Spontaneous
  Country: US (occurrence: None)
  Receive Date: 20150105
  Receipt Date: 20150105
  Transmission Date: 20150720
  Serious: No
  Sender: FDA-Public Use
  Company Number: None

PATIENT
  Age: 54 Year
  Sex: Male
  Weight: 95.5 kg

DRUGS (1)
  1. LISINOPRIL. [Suspect]
     Active Substance: LISINOPRIL
     Indication: HYPERTENSION
     Route: 048
     Dates: start: 20091005, end: 20140611

REACTIONS (4)
  - Chest discomfort [None]
  - Nasal congestion [None]
  - Pulmonary congestion [None]
  - Pleural effusion [None]

NARRATIVE: CASE EVENT DATE: 20140630
